FAERS Safety Report 6547317-2 (Version None)
Quarter: 2010Q1

REPORT INFORMATION
  Report Type: 
  Country: None (occurrence: None)
  Receive Date: 20100122
  Receipt Date: 20100112
  Transmission Date: 20100710
  Serious: Yes (Death)
  Sender: FDA-Public Use
  Company Number: US-KINGPHARMUSA00001-K201000031

PATIENT
  Age: 46 Year
  Sex: Female
  Weight: 97.959 kg

DRUGS (6)
  1. SONATA [Suspect]
     Dosage: 10 MG, UNK
  2. DULOXETINE [Suspect]
     Dosage: UNK
  3. ZOPICLONE [Suspect]
     Dosage: UNK
  4. LAMOTRIGINE [Suspect]
     Dosage: UNK
  5. NAPROXEN [Suspect]
     Dosage: UNK
  6. ALCOHOL [Suspect]
     Dosage: UNK

REACTIONS (3)
  - ACCIDENTAL DEATH [None]
  - DROWNING [None]
  - MULTIPLE DRUG OVERDOSE [None]
